FAERS Safety Report 13495834 (Version 1)
Quarter: 2017Q2

REPORT INFORMATION
  Report Type: Spontaneous
  Country: DE (occurrence: DE)
  Receive Date: 20170428
  Receipt Date: 20170428
  Transmission Date: 20170830
  Serious: Yes (Other)
  Sender: FDA-Public Use
  Company Number: DE-PFIZER INC-2016259625

PATIENT
  Sex: Male

DRUGS (2)
  1. INSPRA [Suspect]
     Active Substance: EPLERENONE
     Dosage: 25 MG, EVERY OTHER DAY
  2. INSPRA [Suspect]
     Active Substance: EPLERENONE
     Dosage: 25 MG

REACTIONS (9)
  - Manganese increased [Unknown]
  - Peripheral swelling [Unknown]
  - Haemoglobin decreased [Unknown]
  - Lyme disease [Unknown]
  - Glomerular filtration rate decreased [Unknown]
  - Haematocrit decreased [Unknown]
  - Blood selenium decreased [Unknown]
  - Ubiquinone decreased [Unknown]
  - Blood glucose increased [Unknown]
